FAERS Safety Report 19875741 (Version 1)
Quarter: 2021Q3

REPORT INFORMATION
  Report Type: Spontaneous
  Country: US (occurrence: US)
  Receive Date: 20210924
  Receipt Date: 20210924
  Transmission Date: 20211014
  Serious: No
  Sender: FDA-Public Use
  Company Number: US-DRREDDYS-SPO/USA/21/0140388

PATIENT
  Age: 59 Year
  Sex: Male
  Weight: 60.75 kg

DRUGS (2)
  1. HABITROL [Suspect]
     Active Substance: NICOTINE
     Route: 062
     Dates: start: 20210920
  2. HABITROL [Suspect]
     Active Substance: NICOTINE
     Indication: TOBACCO USER
     Route: 062

REACTIONS (2)
  - Product dose omission issue [Unknown]
  - Treatment noncompliance [Unknown]
